FAERS Safety Report 4638409-3 (Version None)
Quarter: 2005Q2

REPORT INFORMATION
  Report Type: 
  Country: None (occurrence: None)
  Receive Date: 20050418
  Receipt Date: 20050330
  Transmission Date: 20051028
  Serious: Yes (Hospitalization, Other)
  Sender: FDA-Public Use
  Company Number: USA050394562

PATIENT
  Age: 27 Year
  Sex: Male

DRUGS (2)
  1. STRATTERA [Suspect]
     Indication: ATTENTION DEFICIT/HYPERACTIVITY DISORDER
     Dosage: 80 MG DAY
     Dates: start: 20030301, end: 20041201
  2. LEXAPRO [Concomitant]

REACTIONS (2)
  - CHOLECYSTECTOMY [None]
  - PANCREATITIS [None]
